FAERS Safety Report 4815003-2 (Version None)
Quarter: 2005Q4

REPORT INFORMATION
  Report Type: 
  Country: None (occurrence: None)
  Receive Date: 20051026
  Receipt Date: 20051007
  Transmission Date: 20060501
  Serious: Yes (Death)
  Sender: FDA-Public Use
  Company Number: GBS051018695

PATIENT
  Age: 22 Year
  Sex: Male

DRUGS (3)
  1. FLUOXETINE [Suspect]
     Indication: DEPRESSION
     Dosage: 20 MG
     Dates: start: 20050616
  2. DICLOFENAC [Concomitant]
  3. TEMAZEPAM [Concomitant]

REACTIONS (1)
  - COMPLETED SUICIDE [None]
